FAERS Safety Report 7687301-9 (Version None)
Quarter: 2011Q3

REPORT INFORMATION
  Report Type: 
  Country: None (occurrence: None)
  Receive Date: 20110816
  Receipt Date: 20110810
  Transmission Date: 20111222
  Serious: Yes (Death)
  Sender: FDA-Public Use
  Company Number: JP-ASTRAZENECA-2011SE13652

PATIENT
  Age: 28241 Day
  Sex: Female

DRUGS (51)
  1. ZOSYN [Suspect]
     Route: 065
     Dates: start: 20110210, end: 20110210
  2. FAMOTIDINE [Concomitant]
     Dates: start: 20110125, end: 20110209
  3. LASIX [Concomitant]
     Dates: start: 20110207, end: 20110211
  4. ATROPINE SULFATE [Concomitant]
     Dates: start: 20110211, end: 20110211
  5. MEROPENEM [Suspect]
     Route: 042
     Dates: start: 20110201, end: 20110203
  6. FENTANYL [Concomitant]
     Indication: ANAESTHESIA PROCEDURE
     Route: 042
     Dates: start: 20110124, end: 20110124
  7. FAMOTIDINE [Concomitant]
     Dates: start: 20110210, end: 20110210
  8. PLASMA PROTEIN FRACTION (HUMAN) [Concomitant]
     Route: 042
     Dates: start: 20110124, end: 20110207
  9. VEEN-F [Concomitant]
     Route: 042
     Dates: start: 20110207, end: 20110207
  10. PENTAZOCINE LACTATE [Concomitant]
     Route: 030
     Dates: start: 20110124, end: 20110124
  11. ALPROSTADIL [Concomitant]
     Route: 042
     Dates: start: 20110125, end: 20110207
  12. CAPROCIN [Concomitant]
     Dosage: 10 IU (1,000S)
     Route: 058
     Dates: start: 20110201, end: 20110201
  13. CAPROCIN [Concomitant]
     Dosage: 10 IU (1,000S)
     Route: 058
     Dates: start: 20110203, end: 20110211
  14. VEEN-F [Concomitant]
     Route: 042
     Dates: start: 20110210, end: 20110211
  15. FLURBIPROFEN [Concomitant]
     Dates: start: 20110207, end: 20110207
  16. SOLU-CORTEF [Concomitant]
     Dates: start: 20110211, end: 20110211
  17. FLUCONAZOLE [Concomitant]
     Route: 065
     Dates: start: 20110208, end: 20110211
  18. KENKETSU GLOVENIN-I-NICHIYAKU [Concomitant]
     Route: 042
     Dates: start: 20110124, end: 20110126
  19. FAMOTIDINE [Concomitant]
     Dates: start: 20110124, end: 20110124
  20. PEMIROC [Concomitant]
     Dates: start: 20110204, end: 20110205
  21. PEMIROC [Concomitant]
     Dates: start: 20110206, end: 20110207
  22. SANDOSTATIN [Concomitant]
     Route: 058
     Dates: start: 20110207, end: 20110210
  23. MEROPENEM [Suspect]
     Indication: INFECTIOUS PERITONITIS
     Route: 042
     Dates: start: 20110124, end: 20110124
  24. CATABON [Concomitant]
     Route: 042
     Dates: start: 20110124, end: 20110124
  25. MIDAZOLAM HCL [Concomitant]
     Route: 042
     Dates: start: 20110126, end: 20110126
  26. POTACOL-R [Concomitant]
     Route: 042
     Dates: start: 20110124, end: 20110124
  27. MEROPENEM [Suspect]
     Indication: INTESTINAL ISCHAEMIA
     Route: 042
     Dates: start: 20110124, end: 20110124
  28. VANCOMYCIN HYCHLORIDE [Suspect]
     Route: 065
     Dates: start: 20110210, end: 20110210
  29. CATABON [Concomitant]
     Route: 042
     Dates: start: 20110125, end: 20110125
  30. CATABON [Concomitant]
     Route: 042
     Dates: start: 20110126, end: 20110126
  31. SCOPOLAMINE [Concomitant]
     Route: 042
     Dates: start: 20110124, end: 20110124
  32. PENTAZOCINE LACTATE [Concomitant]
     Route: 042
     Dates: start: 20110202, end: 20110202
  33. PEMIROC [Concomitant]
     Dates: start: 20110127, end: 20110127
  34. LASIX [Concomitant]
     Dates: start: 20110128, end: 20110128
  35. LASIX [Concomitant]
     Dates: start: 20110129, end: 20110206
  36. MEROPENEM [Suspect]
     Route: 042
     Dates: start: 20110125, end: 20110130
  37. MEROPENEM [Suspect]
     Route: 042
     Dates: start: 20110125, end: 20110130
  38. FLUCONAZOLE [Concomitant]
     Route: 065
     Dates: start: 20110201, end: 20110203
  39. MIDAZOLAM HCL [Concomitant]
     Route: 042
     Dates: start: 20110124, end: 20110124
  40. ELASPOL [Concomitant]
     Route: 042
     Dates: start: 20110124, end: 20110206
  41. FOY [Concomitant]
     Route: 042
     Dates: start: 20110124, end: 20110201
  42. TERPERAN [Concomitant]
     Route: 042
     Dates: start: 20110124, end: 20110124
  43. ALBUMIN (HUMAN) [Concomitant]
     Route: 042
     Dates: start: 20110124, end: 20110126
  44. PEMIROC [Concomitant]
     Dates: start: 20110202, end: 20110202
  45. HUMULIN R [Concomitant]
     Route: 042
     Dates: start: 20110201, end: 20110211
  46. NOREPINEPHRINE BITARTRATE [Concomitant]
     Dates: start: 20110211, end: 20110211
  47. ADONA [Concomitant]
     Dates: start: 20110211, end: 20110211
  48. MEROPENEM [Suspect]
     Route: 042
     Dates: start: 20110201, end: 20110203
  49. ZOSYN [Suspect]
     Route: 065
     Dates: start: 20110208, end: 20110209
  50. CATABON [Concomitant]
     Route: 042
     Dates: start: 20110211, end: 20110211
  51. EPINEPHRINE [Concomitant]
     Dates: start: 20110211, end: 20110211

REACTIONS (1)
  - INTESTINAL HAEMORRHAGE [None]
